FAERS Safety Report 7678436-5 (Version None)
Quarter: 2011Q3

REPORT INFORMATION
  Report Type: 
  Country: None (occurrence: None)
  Receive Date: 20110811
  Receipt Date: 20110727
  Transmission Date: 20111222
  Serious: No
  Sender: FDA-Public Use
  Company Number: US-B.I. PHARMACEUTICALS,INC./RIDGEFIELD-2011-BP-11528BP

PATIENT
  Sex: Female

DRUGS (10)
  1. LANTUS [Concomitant]
  2. LISINOPRIL [Concomitant]
  3. PRADAXA [Suspect]
     Indication: ATRIAL FIBRILLATION
     Dosage: 300 MG
     Route: 048
     Dates: start: 20110418
  4. BUMEX [Concomitant]
  5. PRADAXA [Suspect]
     Indication: THROMBOSIS
  6. COMBIVENT [Concomitant]
  7. PROTONIX [Concomitant]
  8. ALDACTONE [Concomitant]
  9. ADVAIR DISKUS 100/50 [Concomitant]
  10. METFORMIN HCL [Concomitant]

REACTIONS (5)
  - EPISTAXIS [None]
  - FATIGUE [None]
  - DECREASED APPETITE [None]
  - TINNITUS [None]
  - OCULAR HYPERAEMIA [None]
